FAERS Safety Report 19803921 (Version 1)
Quarter: 2021Q3

REPORT INFORMATION
  Report Type: Spontaneous
  Country: CN (occurrence: CN)
  Receive Date: 20210908
  Receipt Date: 20210908
  Transmission Date: 20211014
  Serious: Yes (Hospitalization, Other)
  Sender: FDA-Public Use
  Company Number: CN-ASTRAZENECA-2021A699138

PATIENT
  Age: 43 Year
  Sex: Female
  Weight: 75 kg

DRUGS (3)
  1. IMFINZI [Suspect]
     Active Substance: DURVALUMAB
     Indication: NON-SMALL CELL LUNG CANCER STAGE III
     Dosage: ONE INJECTION EVERY 21 DAYS OR EXCEED 21 DAYS, 500MG ONCE.
     Route: 042
     Dates: end: 202102
  2. PACLITAXEL. [Concomitant]
     Active Substance: PACLITAXEL
     Indication: NON-SMALL CELL LUNG CANCER STAGE III
     Dates: end: 20201226
  3. IMFINZI [Suspect]
     Active Substance: DURVALUMAB
     Indication: NON-SMALL CELL LUNG CANCER STAGE III
     Dosage: ONE INJECTION EVERY 21 DAYS OR EXCEED 21 DAYS, 500MG ONCE.
     Route: 042
     Dates: start: 20210510, end: 20210520

REACTIONS (6)
  - Arthralgia [Not Recovered/Not Resolved]
  - Pulmonary mass [Unknown]
  - Rectal haemorrhage [Unknown]
  - General physical health deterioration [Unknown]
  - Hepatic mass [Unknown]
  - Tumour marker abnormal [Unknown]

NARRATIVE: CASE EVENT DATE: 202101
